FAERS Safety Report 12280771 (Version 2)
Quarter: 2016Q2

REPORT INFORMATION
  Report Type: Spontaneous
  Country: US (occurrence: US)
  Receive Date: 20160419
  Receipt Date: 20160427
  Transmission Date: 20160815
  Serious: Yes (Other)
  Sender: FDA-Public Use
  Company Number: US-AUROBINDO-AUR-APL-2016-04585

PATIENT
  Age: 66 Year
  Sex: Male

DRUGS (1)
  1. TRIMETHOPRIM+SULFAMETHOXAZOLE [Suspect]
     Active Substance: SULFAMETHOXAZOLE\TRIMETHOPRIM
     Indication: PNEUMOCYSTIS JIROVECII PNEUMONIA
     Dosage: 15.6 MG/KG, UNK
     Route: 065

REACTIONS (7)
  - Myoclonus [Recovered/Resolved]
  - Thrombocytopenia [Unknown]
  - Postural tremor [Recovered/Resolved]
  - Dyskinesia [Recovered/Resolved]
  - Asterixis [Recovered/Resolved]
  - Oxygen consumption increased [None]
  - Dyspnoea [None]
